FAERS Safety Report 8534446 (Version 7)
Quarter: 2012Q4

REPORT INFORMATION
  Report Type: 
  Country: FR (occurrence: FR)
  Receive Date: 20120427
  Receipt Date: 20120920
  Transmission Date: 20130627
  Serious: Yes (Life-Threatening, Hospitalization)
  Sender: FDA-Public Use
  Company Number: FR-JNJFOC-20120412731

PATIENT
  Age: 23 Year
  Sex: Male

DRUGS (2)
  1. IXPRIM [Suspect]
     Indication: PRODUCT USED FOR UNKNOWN INDICATION
     Route: 048
     Dates: start: 20120401, end: 20120401
  2. OXYCONTIN [Interacting]
     Indication: PRODUCT USED FOR UNKNOWN INDICATION
     Route: 048
     Dates: start: 20120401, end: 20120401

REACTIONS (12)
  - Renal failure acute [Not Recovered/Not Resolved]
  - Hypoxic-ischaemic encephalopathy [Not Recovered/Not Resolved]
  - Rhabdomyolysis [Recovered/Resolved]
  - Respiratory acidosis [Not Recovered/Not Resolved]
  - Coma [Recovered/Resolved]
  - Intentional overdose [Not Recovered/Not Resolved]
  - Miosis [Recovered/Resolved]
  - Drug interaction [Not Recovered/Not Resolved]
  - Heart rate increased [Not Recovered/Not Resolved]
  - Suicide attempt [Not Recovered/Not Resolved]
  - Liver injury [Recovered/Resolved]
  - Hyperglycaemia [Not Recovered/Not Resolved]
